FAERS Safety Report 8505399-2 (Version None)
Quarter: 2012Q3

REPORT INFORMATION
  Report Type: 
  Country: None (occurrence: None)
  Receive Date: 20120712
  Receipt Date: 20120706
  Transmission Date: 20120928
  Serious: Yes (Death)
  Sender: FDA-Public Use
  Company Number: US-PFIZER INC-2012143699

PATIENT
  Sex: Female

DRUGS (1)
  1. SUTENT [Suspect]
     Indication: NEUROENDOCRINE CARCINOMA
     Dosage: 37.5 MG, UNK
     Dates: start: 20120503

REACTIONS (3)
  - DISEASE PROGRESSION [None]
  - DEATH [None]
  - NEUROENDOCRINE CARCINOMA [None]
